FAERS Safety Report 23610754 (Version 1)
Quarter: 2024Q1

REPORT INFORMATION
  Report Type: Spontaneous
  Country: US (occurrence: None)
  Receive Date: 20240307
  Receipt Date: 20240307
  Transmission Date: 20240410
  Serious: Yes (Hospitalization)
  Sender: FDA-Public Use
  Company Number: None

PATIENT
  Age: 36 Year
  Sex: Female

DRUGS (2)
  1. CLOZAPINE [Suspect]
     Active Substance: CLOZAPINE
     Indication: Schizoaffective disorder
     Dates: start: 20240111, end: 20240130
  2. SEROQUEL [Suspect]
     Active Substance: QUETIAPINE FUMARATE

REACTIONS (10)
  - Sleep disorder [None]
  - Somatic symptom disorder [None]
  - Blepharospasm [None]
  - Dyspepsia [None]
  - Muscle twitching [None]
  - Gait disturbance [None]
  - Somnolence [None]
  - Feeling of despair [None]
  - Urinary incontinence [None]
  - Myocarditis [None]

NARRATIVE: CASE EVENT DATE: 20240130
